FAERS Safety Report 8837043 (Version 1)
Quarter: 2012Q4

REPORT INFORMATION
  Report Type: 
  Country: US (occurrence: US)
  Receive Date: 20121011
  Receipt Date: 20121011
  Transmission Date: 20130627
  Serious: Yes (Other)
  Sender: FDA-Public Use
  Company Number: CHPA2012US020895

PATIENT
  Age: 80 Year
  Sex: Female

DRUGS (5)
  1. MAALOX ANTACID WITH ANTI-GAS [Suspect]
     Indication: ULCER
     Dosage: 1 tsp to 2 tbsp, PRN
     Route: 048
  2. MAALOX UNKNOWN [Suspect]
     Indication: ULCER
     Dosage: 1 tsp to 1 tbsp, UNK
     Route: 048
  3. CENTRUM [Concomitant]
     Indication: VITAMIN SUPPLEMENTATION
     Dosage: Unk, Unk
  4. FOLIC ACID [Concomitant]
     Indication: SUPPLEMENTATION THERAPY
     Dosage: Unk, Unk
  5. NEXIUM [Concomitant]
     Indication: ABDOMINAL DISCOMFORT

REACTIONS (7)
  - Gastric ulcer [Unknown]
  - Rheumatoid arthritis [Not Recovered/Not Resolved]
  - Dyspepsia [Not Recovered/Not Resolved]
  - Off label use [Unknown]
  - Therapeutic response unexpected [Unknown]
  - Incorrect drug administration duration [Unknown]
  - Incorrect dose administered [Unknown]
